FAERS Safety Report 24561602 (Version 1)
Quarter: 2024Q4

REPORT INFORMATION
  Report Type: Spontaneous
  Country: US (occurrence: US)
  Receive Date: 20241029
  Receipt Date: 20241029
  Transmission Date: 20250114
  Serious: Yes (Other)
  Sender: AMGEN
  Company Number: US-AMGEN-USASP2024212589

PATIENT
  Age: 80 Year
  Sex: Female

DRUGS (3)
  1. PREDNISONE [Suspect]
     Active Substance: PREDNISONE
     Indication: Rheumatoid arthritis
     Dosage: 2 MILLIGRAM, QD
     Route: 048
  2. ABATACEPT [Concomitant]
     Active Substance: ABATACEPT
     Dosage: 750 MILLIGRAM, EVERY 28 DAYS
     Route: 040
  3. METHOTREXATE [Concomitant]
     Active Substance: METHOTREXATE
     Dosage: 10 MILLIGRAM, QWK
     Route: 048

REACTIONS (5)
  - Cytomegalovirus chorioretinitis [Recovered/Resolved]
  - Necrotising retinitis [Unknown]
  - Cystoid macular oedema [Recovered/Resolved]
  - Rhegmatogenous retinal detachment [Unknown]
  - Gastrointestinal disorder [Unknown]
